FAERS Safety Report 10838988 (Version 2)
Quarter: 2015Q1

REPORT INFORMATION
  Report Type: Spontaneous
  Country: US (occurrence: US)
  Receive Date: 20150220
  Receipt Date: 20150319
  Transmission Date: 20150721
  Serious: No
  Sender: FDA-Public Use
  Company Number: US-ASTRAZENECA-2015SE13903

PATIENT
  Sex: Female
  Weight: 136.1 kg

DRUGS (1)
  1. SYMBICORT [Suspect]
     Active Substance: BUDESONIDE\FORMOTEROL FUMARATE DIHYDRATE
     Indication: ASTHMA
     Dosage: 160/4.5 MCG 2 PUFFS AND COULD TAKE UP TO 4 PUFFS AT A TIME
     Route: 055
     Dates: start: 201501

REACTIONS (4)
  - Intentional product misuse [Unknown]
  - Drug dose omission [Unknown]
  - Off label use [Not Recovered/Not Resolved]
  - Dysgeusia [Unknown]
